FAERS Safety Report 5316437-2 (Version None)
Quarter: 2007Q2

REPORT INFORMATION
  Report Type: 
  Country: None (occurrence: None)
  Receive Date: 20070504
  Receipt Date: 20070423
  Transmission Date: 20071010
  Serious: Yes (Hospitalization)
  Sender: FDA-Public Use
  Company Number: PHEH2007US06502

PATIENT
  Age: 42 Year

DRUGS (1)
  1. ZELNORM [Suspect]
     Indication: IRRITABLE BOWEL SYNDROME
     Route: 048
     Dates: start: 20060601, end: 20070416

REACTIONS (6)
  - BACTERIAL INFECTION [None]
  - CARDIAC DISORDER [None]
  - CARDIAC STRESS TEST ABNORMAL [None]
  - CHEST PAIN [None]
  - DYSPNOEA [None]
  - ECHOCARDIOGRAM ABNORMAL [None]
